FAERS Safety Report 8028950-8 (Version None)
Quarter: 2012Q1

REPORT INFORMATION
  Report Type: 
  Country: None (occurrence: None)
  Receive Date: 20120106
  Receipt Date: 20111230
  Transmission Date: 20120608
  Serious: Yes (Other)
  Sender: FDA-Public Use
  Company Number: US-ABBOTT-11P-163-0835958-00

PATIENT
  Sex: Female
  Weight: 90.8 kg

DRUGS (7)
  1. HUMIRA [Suspect]
     Indication: RHEUMATOID ARTHRITIS
     Dates: start: 20110401, end: 20110601
  2. VITAMIN D [Concomitant]
     Indication: PRODUCT USED FOR UNKNOWN INDICATION
  3. PROZAC [Suspect]
     Indication: DEPRESSION
     Dates: start: 20111218, end: 20111228
  4. FOLIC ACID [Concomitant]
     Indication: VITAMIN SUPPLEMENTATION
     Dosage: DAILY
  5. METHOTREXATE [Concomitant]
     Indication: RHEUMATOID ARTHRITIS
  6. CELEBREX [Concomitant]
     Indication: PRODUCT USED FOR UNKNOWN INDICATION
     Dosage: 1-2 TABLETS DAILY
  7. HUMIRA [Suspect]
     Route: 058
     Dates: start: 20111001

REACTIONS (13)
  - THIRST [None]
  - ARTHRALGIA [None]
  - WEIGHT INCREASED [None]
  - HEADACHE [None]
  - BLOOD PRESSURE INCREASED [None]
  - TOOTH INFECTION [None]
  - ANXIETY [None]
  - FEELING HOT [None]
  - SEROTONIN SYNDROME [None]
  - MEDICAL DEVICE COMPLICATION [None]
  - HOT FLUSH [None]
  - THYROID NEOPLASM [None]
  - INSOMNIA [None]
